FAERS Safety Report 7364878-4 (Version None)
Quarter: 2011Q1

REPORT INFORMATION
  Report Type: 
  Country: None (occurrence: None)
  Receive Date: 20110321
  Receipt Date: 20110311
  Transmission Date: 20110831
  Serious: Yes (Hospitalization)
  Sender: FDA-Public Use
  Company Number: CA-ASTRAZENECA-2011SE14006

PATIENT
  Age: 62 Year
  Sex: Female

DRUGS (2)
  1. PULMICORT [Suspect]
     Dosage: 200 MCGS ONE INHALATION TWICE DAILY
     Route: 055
     Dates: start: 20110101
  2. THYROID MEDICATION [Concomitant]

REACTIONS (2)
  - ASTHMA [None]
  - DRUG INEFFECTIVE [None]
